FAERS Safety Report 17224601 (Version 1)
Quarter: 2020Q1

REPORT INFORMATION
  Report Type: Spontaneous
  Country: CN (occurrence: CN)
  Receive Date: 20200102
  Receipt Date: 20200102
  Transmission Date: 20200409
  Serious: Yes (Other)
  Sender: FDA-Public Use
  Company Number: CN-PFIZER INC-2019559599

PATIENT
  Age: 66 Year
  Sex: Male

DRUGS (1)
  1. VIAGRA [Suspect]
     Active Substance: SILDENAFIL CITRATE
     Indication: ERECTILE DYSFUNCTION
     Dosage: 50 MG, UNK
     Route: 048

REACTIONS (3)
  - Suspected counterfeit product [Unknown]
  - Erectile dysfunction [Unknown]
  - Drug ineffective [Unknown]
